FAERS Safety Report 23365995 (Version 1)
Quarter: 2024Q1

REPORT INFORMATION
  Report Type: Spontaneous
  Country: US (occurrence: None)
  Receive Date: 20240104
  Receipt Date: 20240104
  Transmission Date: 20240410
  Serious: Yes (Disabling, Other)
  Sender: FDA-Public Use
  Company Number: None

PATIENT
  Age: 32 Year
  Sex: Female
  Weight: 62.55 kg

DRUGS (1)
  1. BENZYL ALCOHOL\CIPROFLOXACIN HYDROCHLORIDE\HYDROCORTISONE [Suspect]
     Active Substance: BENZYL ALCOHOL\CIPROFLOXACIN HYDROCHLORIDE\HYDROCORTISONE
     Indication: Urinary tract infection
     Dosage: OTHER QUANTITY : 6 TABLET(S);?FREQUENCY : EVERY 12 HOURS;?
     Route: 048
     Dates: start: 20230128, end: 20231230

REACTIONS (7)
  - Pain in extremity [None]
  - Tendon pain [None]
  - Dyspnoea [None]
  - Muscle twitching [None]
  - Pain [None]
  - Chest discomfort [None]
  - Muscle tightness [None]

NARRATIVE: CASE EVENT DATE: 20231230
